FAERS Safety Report 6756125-9 (Version None)
Quarter: 2010Q2

REPORT INFORMATION
  Report Type: 
  Country: None (occurrence: None)
  Receive Date: 20100603
  Receipt Date: 20100603
  Transmission Date: 20101027
  Serious: No
  Sender: FDA-Public Use
  Company Number: None

PATIENT
  Age: 58 Year
  Sex: Male
  Weight: 91.5 kg

DRUGS (2)
  1. CISPLATIN [Suspect]
     Dosage: 171 MG EVERY DAY IV
     Route: 042
     Dates: start: 20100224, end: 20100226
  2. ETOPOSIDE [Suspect]
     Dosage: 171 MG EVERY DAY IV
     Route: 042
     Dates: start: 20100224, end: 20100226

REACTIONS (4)
  - BLOOD CREATININE INCREASED [None]
  - BLOOD UREA INCREASED [None]
  - LEUKOPENIA [None]
  - THROMBOCYTOPENIA [None]
